FAERS Safety Report 9521802 (Version 1)
Quarter: 2013Q3

REPORT INFORMATION
  Report Type: Report from Study
  Country: KR (occurrence: KR)
  Receive Date: 20130913
  Receipt Date: 20130913
  Transmission Date: 20140515
  Serious: No
  Sender: FDA-Public Use
  Company Number: PHHY2013KR099101

PATIENT
  Age: 26 Year
  Sex: Male

DRUGS (4)
  1. GLIVEC [Suspect]
     Indication: CHRONIC MYELOID LEUKAEMIA
     Dosage: 400 MG, QD
     Route: 048
     Dates: start: 20110331, end: 20130215
  2. GLIVEC [Suspect]
     Dosage: 400 MG, QD
     Route: 048
     Dates: start: 20130215, end: 20130218
  3. GLIVEC [Suspect]
     Dosage: 400 MG, QD
     Route: 048
     Dates: start: 20130219, end: 2013
  4. TASIGNA [Suspect]
     Indication: CHRONIC MYELOID LEUKAEMIA
     Dosage: 800 MG, BID
     Route: 048
     Dates: start: 201305

REACTIONS (2)
  - Incorrect dose administered [Unknown]
  - Headache [Not Recovered/Not Resolved]
